FAERS Safety Report 15783461 (Version 1)
Quarter: 2019Q1

REPORT INFORMATION
  Report Type: Spontaneous
  Country: SE (occurrence: SE)
  Receive Date: 20190102
  Receipt Date: 20190102
  Transmission Date: 20190417
  Serious: Yes (Death, Hospitalization)
  Sender: FDA-Public Use
  Company Number: SE-MYLANLABS-2018M1097271

PATIENT
  Age: 74 Year
  Sex: Female

DRUGS (2)
  1. LETROZOLE. [Suspect]
     Active Substance: LETROZOLE
     Indication: OESTROGEN RECEPTOR POSITIVE BREAST CANCER
     Dosage: UNK
     Dates: start: 201803
  2. IBRANCE [Suspect]
     Active Substance: PALBOCICLIB
     Indication: OESTROGEN RECEPTOR POSITIVE BREAST CANCER
     Dosage: UNK
     Dates: start: 201803, end: 201806

REACTIONS (5)
  - Vascular pseudoaneurysm [Fatal]
  - Endocarditis staphylococcal [Recovering/Resolving]
  - Staphylococcal sepsis [Recovering/Resolving]
  - Hyponatraemia [Not Recovered/Not Resolved]
  - Embolism [Recovering/Resolving]

NARRATIVE: CASE EVENT DATE: 201806
